FAERS Safety Report 13443254 (Version 1)
Quarter: 2017Q2

REPORT INFORMATION
  Report Type: Spontaneous
  Country: US (occurrence: US)
  Receive Date: 20170413
  Receipt Date: 20170413
  Transmission Date: 20170830
  Serious: No
  Sender: FDA-Public Use
  Company Number: None

PATIENT
  Sex: Female

DRUGS (1)
  1. HUMIRA [Suspect]
     Active Substance: ADALIMUMAB
     Indication: PSORIATIC ARTHROPATHY
     Dosage: 40MG/0.8ML EVERY TWO WEEKS SUBCUTANEOUSLY
     Route: 058
     Dates: start: 20170120

REACTIONS (3)
  - Pain [None]
  - Malaise [None]
  - Swelling [None]
